FAERS Safety Report 25148021 (Version 1)
Quarter: 2025Q2

REPORT INFORMATION
  Report Type: Spontaneous
  Country: CA (occurrence: CA)
  Receive Date: 20250402
  Receipt Date: 20250402
  Transmission Date: 20250717
  Serious: Yes (Hospitalization)
  Sender: CHEPLAPHARM
  Company Number: CA-CHEPLA-2025004075

PATIENT
  Age: 81 Year
  Sex: Female
  Weight: 76 kg

DRUGS (6)
  1. HYDROXYUREA [Suspect]
     Active Substance: HYDROXYUREA
     Indication: Chronic myelomonocytic leukaemia
     Dosage: 1 EVERY 1 DAYS?DAILY DOSE: 500 MILLIGRAM
     Route: 048
  2. AMOXICILLIN\CLAVULANIC ACID [Concomitant]
     Active Substance: AMOXICILLIN\CLAVULANIC ACID
  3. Dalmacol [Concomitant]
     Route: 048
  4. POLYETHYLENE GLYCOL [Concomitant]
     Active Substance: POLYETHYLENE GLYCOL
  5. RAMIPRIL [Concomitant]
     Active Substance: RAMIPRIL
  6. VITAMIN B12 [Concomitant]
     Active Substance: CYANOCOBALAMIN

REACTIONS (4)
  - Acute kidney injury [Recovering/Resolving]
  - Tumour lysis syndrome [Recovering/Resolving]
  - Anaemia [Recovering/Resolving]
  - Productive cough [Recovering/Resolving]
